FAERS Safety Report 5004926-X (Version None)
Quarter: 2006Q1

REPORT INFORMATION
  Report Type: 
  Country: None (occurrence: None)
  Receive Date: 20060321
  Receipt Date: 20051205
  Transmission Date: 20060701
  Serious: No
  Sender: FDA-Public Use
  Company Number: YPA20050619

PATIENT
  Age: 81 Year
  Sex: Male

DRUGS (9)
  1. VESICARE [Suspect]
     Dosage: 5 MG, ORAL
     Route: 048
     Dates: start: 20051202
  2. ARICEPT [Concomitant]
  3. PROSCAR [Concomitant]
  4. NAMENDA [Concomitant]
  5. ASCORBIC ACID [Concomitant]
  6. LOVASTATIN [Concomitant]
  7. ASPIRIN [Concomitant]
  8. VITAMINS [Concomitant]
  9. ZYRTEC [Concomitant]

REACTIONS (3)
  - DRUG INEFFECTIVE [None]
  - MICTURITION URGENCY [None]
  - URINARY INCONTINENCE [None]
